FAERS Safety Report 7355901-1 (Version None)
Quarter: 2011Q1

REPORT INFORMATION
  Report Type: 
  Country: None (occurrence: None)
  Receive Date: 20110316
  Receipt Date: 20101103
  Transmission Date: 20110831
  Serious: No
  Sender: FDA-Public Use
  Company Number: US-BAYER-201023493BCC

PATIENT
  Sex: Male
  Weight: 127.27 kg

DRUGS (3)
  1. SIMVASTATIN [Concomitant]
  2. ALEVE [Suspect]
     Indication: ARTHRITIS
     Dosage: 440 MG, QD, BOTTLE COUNT 200S
     Route: 048
     Dates: start: 20101024
  3. BENAZEPRIL [Concomitant]

REACTIONS (1)
  - NO ADVERSE EVENT [None]
